FAERS Safety Report 20436626 (Version 1)
Quarter: 2022Q1

REPORT INFORMATION
  Report Type: Report from Study
  Country: US (occurrence: US)
  Receive Date: 20220207
  Receipt Date: 20220207
  Transmission Date: 20220424
  Serious: Yes (Other)
  Sender: FDA-Public Use
  Company Number: US-ABBVIE-22K-163-4264749-00

PATIENT
  Age: 49 Year
  Sex: Female

DRUGS (3)
  1. VENCLEXTA [Suspect]
     Active Substance: VENETOCLAX
     Indication: Acute myeloid leukaemia
     Route: 048
     Dates: start: 20211202, end: 202201
  2. VENCLEXTA [Suspect]
     Active Substance: VENETOCLAX
     Route: 048
     Dates: start: 202201
  3. VIDAZA [Suspect]
     Active Substance: AZACITIDINE
     Indication: Product used for unknown indication
     Route: 065

REACTIONS (3)
  - Transfusion [Unknown]
  - White blood cell count decreased [Unknown]
  - Nausea [Unknown]

NARRATIVE: CASE EVENT DATE: 20220101
